FAERS Safety Report 7022931-9 (Version None)
Quarter: 2010Q3

REPORT INFORMATION
  Report Type: 
  Country: None (occurrence: None)
  Receive Date: 20100930
  Receipt Date: 20100920
  Transmission Date: 20110219
  Serious: Yes (Other)
  Sender: FDA-Public Use
  Company Number: US-NAPPMUNDI-USA-2010-0047287

PATIENT
  Age: 54 Year
  Sex: Male

DRUGS (1)
  1. OXYCONTIN [Suspect]
     Indication: PAIN
     Dosage: 60 MG, TID
     Dates: start: 20100908

REACTIONS (4)
  - HAEMATEMESIS [None]
  - INADEQUATE ANALGESIA [None]
  - INCREASED UPPER AIRWAY SECRETION [None]
  - NAUSEA [None]
